FAERS Safety Report 13113054 (Version 1)
Quarter: 2017Q1

REPORT INFORMATION
  Report Type: Spontaneous
  Country: US (occurrence: US)
  Receive Date: 20170112
  Receipt Date: 20170112
  Transmission Date: 20170428
  Serious: Yes (Disabling)
  Sender: FDA-Public Use
  Company Number: None

PATIENT
  Age: 65 Year
  Sex: Female
  Weight: 63 kg

DRUGS (1)
  1. TRANSDERMAL SCOPOLAMINE 1.5 [Suspect]
     Active Substance: SCOPOLAMINE
     Indication: MOTION SICKNESS
     Dosage: ?          QUANTITY:3 PATCH(ES);OTHER FREQUENCY:EVERY 72 HRS;?
     Route: 061
     Dates: start: 20161225, end: 20170105

REACTIONS (7)
  - Vomiting [None]
  - Dysstasia [None]
  - Drug withdrawal syndrome [None]
  - Therapy cessation [None]
  - Nausea [None]
  - Dizziness [None]
  - Headache [None]

NARRATIVE: CASE EVENT DATE: 20170106
